FAERS Safety Report 15317355 (Version 1)
Quarter: 2018Q3

REPORT INFORMATION
  Report Type: Spontaneous
  Country: CA (occurrence: CA)
  Receive Date: 20180824
  Receipt Date: 20180824
  Transmission Date: 20181010
  Serious: Yes (Other)
  Sender: FDA-Public Use
  Company Number: CA-PFIZER INC-2018339065

PATIENT
  Age: 27 Year
  Sex: Female

DRUGS (1)
  1. ALESSE 28 [Suspect]
     Active Substance: ETHINYL ESTRADIOL\LEVONORGESTREL
     Indication: CONTRACEPTION
     Dosage: 1 DF, 1X/DAY
     Route: 048

REACTIONS (6)
  - Abortion spontaneous [Unknown]
  - Drug ineffective [Unknown]
  - Abdominal pain lower [Unknown]
  - Breast discolouration [Unknown]
  - Vaginal haemorrhage [Unknown]
  - Unintended pregnancy [Unknown]
